FAERS Safety Report 5911370-7 (Version None)
Quarter: 2008Q4

REPORT INFORMATION
  Report Type: 
  Country: None (occurrence: None)
  Receive Date: 20081007
  Receipt Date: 20080718
  Transmission Date: 20090506
  Serious: No
  Sender: FDA-Public Use
  Company Number: US-ASTRAZENECA-2008UW15053

PATIENT
  Age: 82 Year
  Sex: Female

DRUGS (3)
  1. ARIMIDEX [Suspect]
     Indication: BREAST CANCER
     Route: 048
     Dates: start: 20080601
  2. NEXIUM [Concomitant]
  3. CALCIUM [Concomitant]

REACTIONS (4)
  - ALOPECIA [None]
  - HOT FLUSH [None]
  - NAIL DISORDER [None]
  - SLEEP DISORDER [None]
